FAERS Safety Report 7425435-4 (Version None)
Quarter: 2011Q2

REPORT INFORMATION
  Report Type: 
  Country: None (occurrence: None)
  Receive Date: 20110420
  Receipt Date: 20110413
  Transmission Date: 20111010
  Serious: Yes (Other)
  Sender: FDA-Public Use
  Company Number: US-AMGEN-USASP2011019908

PATIENT
  Age: 75 Year
  Sex: Male
  Weight: 75.737 kg

DRUGS (3)
  1. IVIGLOB-EX [Concomitant]
  2. CORTICOSTEROIDS [Concomitant]
  3. NPLATE [Suspect]
     Indication: IDIOPATHIC THROMBOCYTOPENIC PURPURA
     Dates: start: 20090306

REACTIONS (4)
  - DEVICE MALFUNCTION [None]
  - PLATELET COUNT DECREASED [None]
  - INJURY [None]
  - ECCHYMOSIS [None]
